FAERS Safety Report 9448501 (Version 2)
Quarter: 2013Q4

REPORT INFORMATION
  Report Type: Spontaneous
  Country: GB (occurrence: GB)
  Receive Date: 20130808
  Receipt Date: 20131107
  Transmission Date: 20140711
  Serious: Yes (Hospitalization)
  Sender: FDA-Public Use
  Company Number: GB-BANPHARM-20131548

PATIENT
  Age: 34 Year
  Sex: Female

DRUGS (8)
  1. IBUPROFEN UNKNOWN PRODUCT [Suspect]
     Indication: INTERVERTEBRAL DISC PROTRUSION
     Dosage: 400 MG, TID,
     Route: 048
     Dates: end: 20130716
  2. AMITRIPTYLINE [Concomitant]
     Dosage: PRN,
  3. BENDROFLUMETHIAZIDE [Concomitant]
  4. CO-CODAMOL [Concomitant]
  5. DIAZEPAM [Concomitant]
     Indication: NECK PAIN
     Dosage: PRN,
  6. DULOXETINE [Concomitant]
  7. PROPRANOLOL [Concomitant]
     Dosage: PRN,
  8. RAMIPRIL [Concomitant]

REACTIONS (3)
  - Gastric ulcer [Recovering/Resolving]
  - Haematemesis [Unknown]
  - Gastrooesophageal reflux disease [Recovering/Resolving]
